FAERS Safety Report 6547676-0 (Version None)
Quarter: 2010Q1

REPORT INFORMATION
  Report Type: 
  Country: None (occurrence: None)
  Receive Date: 20100123
  Receipt Date: 20100113
  Transmission Date: 20100710
  Serious: Yes (Other)
  Sender: FDA-Public Use
  Company Number: US-JNJFOC-20100104725

PATIENT
  Sex: Male

DRUGS (2)
  1. INVEGA [Suspect]
     Indication: MOOD SWINGS
     Route: 048
  2. LAMICTAL [Concomitant]
     Indication: MOOD SWINGS
     Route: 048

REACTIONS (5)
  - GAIT DISTURBANCE [None]
  - MYALGIA [None]
  - OFF LABEL USE [None]
  - SWOLLEN TONGUE [None]
  - TORTICOLLIS [None]
